FAERS Safety Report 15763077 (Version 8)
Quarter: 2019Q3

REPORT INFORMATION
  Report Type: Report from Study
  Country: None (occurrence: US)
  Receive Date: 20181226
  Receipt Date: 20190926
  Transmission Date: 20191004
  Serious: Yes (Hospitalization, Other)
  Sender: FDA-Public Use
  Company Number: US-ABBVIE-18K-163-2600383-00

PATIENT
  Age: 32 Year
  Sex: Female
  Weight: 66.74 kg

DRUGS (10)
  1. KEFLEX [Suspect]
     Active Substance: CEPHALEXIN
     Indication: PRODUCT USED FOR UNKNOWN INDICATION
     Route: 065
  2. DETROL LA [Concomitant]
     Active Substance: TOLTERODINE TARTRATE
     Indication: HYPERTONIC BLADDER
  3. PLAQUENIL [Concomitant]
     Active Substance: HYDROXYCHLOROQUINE SULFATE
     Indication: RHEUMATOID ARTHRITIS
  4. XANAX [Concomitant]
     Active Substance: ALPRAZOLAM
     Indication: ANXIETY
  5. HUMIRA [Suspect]
     Active Substance: ADALIMUMAB
     Indication: RHEUMATOID ARTHRITIS
     Route: 058
     Dates: start: 20181214
  6. HUMIRA [Suspect]
     Active Substance: ADALIMUMAB
     Route: 058
  7. EFFEXOR [Concomitant]
     Active Substance: VENLAFAXINE HYDROCHLORIDE
     Indication: HOT FLUSH
  8. NORCO [Concomitant]
     Active Substance: ACETAMINOPHEN\HYDROCODONE BITARTRATE
     Indication: BACK PAIN
  9. PROMETHAZINE [Concomitant]
     Active Substance: PROMETHAZINE HYDROCHLORIDE
     Indication: VERTIGO
  10. HUMIRA [Suspect]
     Active Substance: ADALIMUMAB
     Indication: RHEUMATOID ARTHRITIS
     Route: 058
     Dates: start: 2012, end: 201508

REACTIONS (27)
  - Joint range of motion decreased [Unknown]
  - Pruritus allergic [Recovered/Resolved]
  - Erythema [Recovered/Resolved]
  - Therapeutic response shortened [Unknown]
  - Breast cancer female [Recovered/Resolved]
  - Joint swelling [Recovering/Resolving]
  - Swelling [Not Recovered/Not Resolved]
  - Peripheral swelling [Recovering/Resolving]
  - Arthralgia [Not Recovered/Not Resolved]
  - Musculoskeletal pain [Not Recovered/Not Resolved]
  - Extra dose administered [Recovered/Resolved]
  - Osteoarthritis [Unknown]
  - Musculoskeletal stiffness [Recovering/Resolving]
  - Drug hypersensitivity [Recovered/Resolved]
  - Dizziness [Recovered/Resolved]
  - Hot flush [Not Recovered/Not Resolved]
  - Dermatitis allergic [Unknown]
  - Cancer gene carrier [Unknown]
  - Pain [Recovering/Resolving]
  - Joint stiffness [Recovering/Resolving]
  - Pain in extremity [Recovering/Resolving]
  - Vomiting [Recovered/Resolved]
  - Pain in extremity [Unknown]
  - Rheumatoid arthritis [Unknown]
  - Vertigo [Not Recovered/Not Resolved]
  - Anxiety [Unknown]
  - Nausea [Recovered/Resolved]

NARRATIVE: CASE EVENT DATE: 2012
